FAERS Safety Report 10669194 (Version 1)
Quarter: 2014Q4

REPORT INFORMATION
  Report Type: Report from Study
  Country: CN (occurrence: CN)
  Receive Date: 20141222
  Receipt Date: 20141222
  Transmission Date: 20150529
  Serious: Yes (Other)
  Sender: FDA-Public Use
  Company Number: CN-MYLANLABS-2014M1015202

PATIENT

DRUGS (2)
  1. MITOXANTRONE [Suspect]
     Active Substance: MITOXANTRONE HYDROCHLORIDE
     Indication: ACUTE MYELOID LEUKAEMIA
     Route: 065
  2. CYTARABINE. [Suspect]
     Active Substance: CYTARABINE
     Indication: ACUTE MYELOID LEUKAEMIA
     Route: 065

REACTIONS (1)
  - Drug-induced liver injury [Recovered/Resolved]
